FAERS Safety Report 8847419 (Version 1)
Quarter: 2012Q4

REPORT INFORMATION
  Report Type: 
  Country: US (occurrence: US)
  Receive Date: 20121018
  Receipt Date: 20121018
  Transmission Date: 20130627
  Serious: Yes (Hospitalization)
  Sender: FDA-Public Use
  Company Number: US-TEVA-364369USA

PATIENT
  Age: 84 Year
  Sex: Female

DRUGS (1)
  1. COPAXONE [Suspect]
     Indication: MULTIPLE SCLEROSIS
     Dates: start: 20030521

REACTIONS (4)
  - Fall [Recovering/Resolving]
  - Rib fracture [Recovering/Resolving]
  - Convulsion [Recovering/Resolving]
  - Urinary tract infection [Recovering/Resolving]
